FAERS Safety Report 20925190 (Version 1)
Quarter: 2022Q2

REPORT INFORMATION
  Report Type: Spontaneous
  Country: MX (occurrence: MX)
  Receive Date: 20220607
  Receipt Date: 20220607
  Transmission Date: 20220721
  Serious: Yes (Other)
  Sender: FDA-Public Use
  Company Number: MX-PFIZER INC-202200804323

PATIENT
  Sex: Female

DRUGS (1)
  1. METHOTREXATE [Suspect]
     Active Substance: METHOTREXATE
     Dosage: 5 MG, 2X/WEEK (2.5 MG, 2X/DAY ON SATURDAYS AND SUNDAYS)

REACTIONS (9)
  - Oropharyngeal candidiasis [Unknown]
  - Oral candidiasis [Unknown]
  - Pharyngeal swelling [Unknown]
  - Dysphagia [Unknown]
  - Mouth haemorrhage [Unknown]
  - Epistaxis [Unknown]
  - Vomiting [Unknown]
  - Cough [Unknown]
  - Productive cough [Unknown]
